FAERS Safety Report 7494427-1 (Version None)
Quarter: 2011Q2

REPORT INFORMATION
  Report Type: 
  Country: None (occurrence: None)
  Receive Date: 20110520
  Receipt Date: 20110516
  Transmission Date: 20111010
  Serious: Yes (Other)
  Sender: FDA-Public Use
  Company Number: US-PFIZER INC-2011056038

PATIENT
  Sex: Male
  Weight: 88.889 kg

DRUGS (4)
  1. NORVASC [Concomitant]
     Indication: HYPERTENSION
     Dosage: 10 MG, UNK
  2. GABAPENTIN [Suspect]
     Indication: PAIN IN EXTREMITY
     Dosage: 300 MG, 2X/DAY
     Route: 048
     Dates: start: 20101001
  3. LIPITOR [Suspect]
     Indication: BLOOD CHOLESTEROL INCREASED
     Dosage: 40 MG, UNK
  4. NEURONTIN [Suspect]
     Indication: PAIN IN EXTREMITY
     Dosage: 300 MG, 3X/DAY
     Route: 048
     Dates: start: 20101212, end: 20110301

REACTIONS (1)
  - CHEST PAIN [None]
